FAERS Safety Report 8443335-8 (Version None)
Quarter: 2012Q2

REPORT INFORMATION
  Report Type: 
  Country: None (occurrence: None)
  Receive Date: 20120618
  Receipt Date: 20120511
  Transmission Date: 20120825
  Serious: Yes (Other)
  Sender: FDA-Public Use
  Company Number: PHHY2012PT051384

PATIENT

DRUGS (4)
  1. CYCLOSPORINE [Suspect]
     Indication: IMMUNOSUPPRESSION
     Dosage: UNK UKN, UNK
  2. MYCOPHENOLIC ACID [Suspect]
     Indication: IMMUNOSUPPRESSION
     Dosage: UNK UKN, UNK
  3. PREDNISONE [Concomitant]
     Dosage: UNK UKN, UNK
  4. ANTI-THYMOCYTE GLOBULIN NOS [Concomitant]
     Dosage: UNK UKN, UNK

REACTIONS (1)
  - ISCHAEMIC STROKE [None]
